FAERS Safety Report 6630781-8 (Version None)
Quarter: 2010Q1

REPORT INFORMATION
  Report Type: 
  Country: None (occurrence: None)
  Receive Date: 20100311
  Receipt Date: 20100303
  Transmission Date: 20100710
  Serious: Yes (Other)
  Sender: FDA-Public Use
  Company Number: PHHY2010US09421

PATIENT
  Sex: Female

DRUGS (7)
  1. EXTAVIA [Suspect]
     Indication: MULTIPLE SCLEROSIS
     Dosage: 0.0625 MG /QOD
     Route: 058
     Dates: start: 20100211
  2. CLONAZEPAM [Concomitant]
     Dosage: 1 MG, QD
  3. CITALOPRAM HYDROBROMIDE [Concomitant]
     Dosage: 40 MG, QD
  4. AMANTADINE HCL [Concomitant]
     Dosage: 100 MG, BID
  5. MULTI-VITAMINS [Concomitant]
     Dosage: 1 QD
  6. LOVAZA [Concomitant]
     Dosage: 1 QD
  7. ADVIL LIQUI-GELS [Concomitant]
     Dosage: 400 MG

REACTIONS (8)
  - BLINDNESS TRANSIENT [None]
  - FEELING HOT [None]
  - INJECTION SITE ERYTHEMA [None]
  - INSOMNIA [None]
  - MYALGIA [None]
  - PYREXIA [None]
  - VISION BLURRED [None]
  - VISUAL IMPAIRMENT [None]
